FAERS Safety Report 6262689-4 (Version None)
Quarter: 2009Q3

REPORT INFORMATION
  Report Type: 
  Country: None (occurrence: None)
  Receive Date: 20090708
  Receipt Date: 20090630
  Transmission Date: 20100115
  Serious: Yes (Other)
  Sender: FDA-Public Use
  Company Number: 2009US001963

PATIENT
  Age: 43 Year
  Sex: Female

DRUGS (5)
  1. VESICARE [Suspect]
     Indication: HYPERTONIC BLADDER
     Dosage: UNK, TOTAL DOSE, ORAL
     Route: 048
  2. SINGULAIR [Concomitant]
  3. ZOLOFT [Concomitant]
  4. ALTOSEC [Concomitant]
  5. XANAX [Concomitant]

REACTIONS (1)
  - SYNCOPE [None]
